FAERS Safety Report 6273976-8 (Version None)
Quarter: 2009Q3

REPORT INFORMATION
  Report Type: 
  Country: None (occurrence: None)
  Receive Date: 20090720
  Receipt Date: 20090707
  Transmission Date: 20100115
  Serious: Yes (Other)
  Sender: FDA-Public Use
  Company Number: FR-ROCHE-635654

PATIENT
  Sex: Male
  Weight: 78 kg

DRUGS (1)
  1. ROACCUTANE [Suspect]
     Indication: ACNE
     Route: 048
     Dates: start: 20030131, end: 20040311

REACTIONS (4)
  - ARTHRALGIA [None]
  - ASTHENIA [None]
  - DYSPEPSIA [None]
  - GASTRITIS [None]
